FAERS Safety Report 12573738 (Version 1)
Quarter: 2016Q3

REPORT INFORMATION
  Report Type: Spontaneous
  Country: DE (occurrence: DE)
  Receive Date: 20160720
  Receipt Date: 20160720
  Transmission Date: 20161109
  Serious: Yes (Other)
  Sender: FDA-Public Use
  Company Number: DE-TEVA-674320GER

PATIENT
  Age: 1 Day
  Sex: Male
  Weight: 3.27 kg

DRUGS (5)
  1. LAMOTRIGIN [Suspect]
     Active Substance: LAMOTRIGINE
     Route: 063
     Dates: start: 201601
  2. CYTOTEC [Concomitant]
     Active Substance: MISOPROSTOL
     Indication: LABOUR INDUCTION
     Route: 064
     Dates: start: 20160117, end: 20160117
  3. INSULIN [Concomitant]
     Active Substance: INSULIN NOS
     Indication: GESTATIONAL DIABETES
     Route: 064
  4. LAMOTRIGIN [Suspect]
     Active Substance: LAMOTRIGINE
     Indication: EPILEPSY
     Dosage: 300 (MG/D (TO 150))
     Route: 064
     Dates: start: 20150428, end: 20160117
  5. FOLSAN [Concomitant]
     Active Substance: FOLIC ACID
     Indication: PROPHYLAXIS OF NEURAL TUBE DEFECT
     Dosage: 5 MILLIGRAM DAILY;
     Route: 064
     Dates: start: 20150428, end: 20160118

REACTIONS (4)
  - Foetal exposure during pregnancy [Unknown]
  - Hypotonia [Unknown]
  - Fatigue [Recovering/Resolving]
  - Exposure during breast feeding [Unknown]

NARRATIVE: CASE EVENT DATE: 20160117
